FAERS Safety Report 4478705-6 (Version None)
Quarter: 2004Q3

REPORT INFORMATION
  Report Type: 
  Country: None (occurrence: None)
  Receive Date: 20040923
  Receipt Date: 20040524
  Transmission Date: 20050211
  Serious: No
  Sender: FDA-Public Use
  Company Number: USA040568387

PATIENT
  Age: 60 Year
  Sex: Female
  Weight: 45 kg

DRUGS (10)
  1. FORTEO [Suspect]
     Indication: OSTEOPOROSIS
     Dates: start: 20040518
  2. HYDROCORTISONE [Concomitant]
  3. NEXIUM [Concomitant]
  4. PANCREASE (PANCRELIPASE) [Concomitant]
  5. QUININE SULFATE [Concomitant]
  6. TOPROL-XL [Concomitant]
  7. POTASSIUM [Concomitant]
  8. LOMOTIL [Concomitant]
  9. ATROPINE [Concomitant]
  10. SERZONE [Concomitant]

REACTIONS (3)
  - ARTHRALGIA [None]
  - DIFFICULTY IN WALKING [None]
  - PAIN [None]
